FAERS Safety Report 7167596-0 (Version None)
Quarter: 2010Q4

REPORT INFORMATION
  Report Type: 
  Country: None (occurrence: None)
  Receive Date: 20101216
  Receipt Date: 20100427
  Transmission Date: 20110411
  Serious: No
  Sender: FDA-Public Use
  Company Number: A0856837A

PATIENT
  Age: 50 Year
  Sex: Female

DRUGS (4)
  1. NICOTINE POLACRILEX [Suspect]
     Dates: start: 20100101
  2. COMMIT [Suspect]
     Dates: start: 20100101
  3. NICODERM CQ [Suspect]
     Dates: start: 20100101
  4. NICODERM CQ [Suspect]
     Dates: start: 20100101

REACTIONS (3)
  - DRUG ADMINISTRATION ERROR [None]
  - EXPIRED DRUG ADMINISTERED [None]
  - NICOTINE DEPENDENCE [None]
